FAERS Safety Report 9167161 (Version 2)
Quarter: 2013Q2

REPORT INFORMATION
  Report Type: Spontaneous
  Country: US (occurrence: US)
  Receive Date: 20130318
  Receipt Date: 20130603
  Transmission Date: 20140414
  Serious: No
  Sender: FDA-Public Use
  Company Number: US-BIOGENIDEC-2013BI023037

PATIENT
  Sex: Female

DRUGS (1)
  1. TYSABRI [Suspect]
     Indication: MULTIPLE SCLEROSIS
     Route: 042
     Dates: start: 20120727, end: 20121211

REACTIONS (5)
  - Muscle spasticity [Not Recovered/Not Resolved]
  - Vertigo [Recovered/Resolved]
  - Faecal incontinence [Recovered/Resolved]
  - Migraine [Recovered/Resolved]
  - Fatigue [Unknown]
